FAERS Safety Report 16524712 (Version 1)
Quarter: 2019Q3

REPORT INFORMATION
  Report Type: Report from Study
  Country: None (occurrence: DE)
  Receive Date: 20190703
  Receipt Date: 20190703
  Transmission Date: 20191004
  Serious: Yes (Hospitalization)
  Sender: FDA-Public Use
  Company Number: DE-ABBVIE-19P-062-2837109-00

PATIENT
  Age: 34 Year
  Sex: Female

DRUGS (21)
  1. PREDNISOLONE. [Concomitant]
     Active Substance: PREDNISOLONE
     Indication: COLITIS ULCERATIVE
     Route: 048
     Dates: start: 2009, end: 201201
  2. SALOFALK GRANULES [Concomitant]
     Indication: COLITIS ULCERATIVE
     Route: 048
     Dates: start: 20131012, end: 20171025
  3. SALOFALK GRANULES [Concomitant]
     Route: 048
     Dates: start: 20171208
  4. XELJANZ [Concomitant]
     Active Substance: TOFACITINIB CITRATE
     Indication: COLITIS ULCERATIVE
     Route: 048
     Dates: start: 20180303, end: 20180408
  5. XELJANZ [Concomitant]
     Active Substance: TOFACITINIB CITRATE
     Route: 048
     Dates: start: 20181026
  6. LANTUS [Concomitant]
     Active Substance: INSULIN GLARGINE
     Indication: TYPE 1 DIABETES MELLITUS
     Route: 058
  7. ATROVASTATIN [Concomitant]
     Active Substance: ATORVASTATIN CALCIUM
     Indication: HYPERCHOLESTEROLAEMIA
     Route: 048
     Dates: start: 20190215
  8. PREDNISOLONE. [Concomitant]
     Active Substance: PREDNISOLONE
     Route: 048
     Dates: start: 20171012, end: 201712
  9. XELJANZ [Concomitant]
     Active Substance: TOFACITINIB CITRATE
     Route: 048
     Dates: start: 20180409, end: 20181025
  10. HUMALOG [Concomitant]
     Active Substance: INSULIN LISPRO
     Indication: TYPE 1 DIABETES MELLITUS
     Route: 058
  11. PREDNISOLONE. [Concomitant]
     Active Substance: PREDNISOLONE
     Route: 048
     Dates: start: 20160115, end: 20160209
  12. SALOFALK SUPP. [Concomitant]
     Route: 054
     Dates: start: 20181108
  13. HUMIRA [Suspect]
     Active Substance: ADALIMUMAB
     Indication: COLITIS ULCERATIVE
     Route: 058
     Dates: start: 201212, end: 20121221
  14. PREDNISOLONE. [Concomitant]
     Active Substance: PREDNISOLONE
     Route: 048
     Dates: start: 201211, end: 201303
  15. PREDNISOLONE. [Concomitant]
     Active Substance: PREDNISOLONE
     Route: 048
     Dates: start: 20151211, end: 20160106
  16. SALOFALK SUPP. [Concomitant]
     Route: 054
     Dates: start: 20151210, end: 201603
  17. SALOFALK SUPP. [Concomitant]
     Route: 054
     Dates: start: 20180208, end: 201803
  18. CORTIMENT [Concomitant]
     Indication: COLITIS ULCERATIVE
     Route: 048
     Dates: start: 20160107, end: 20160115
  19. HUMIRA [Suspect]
     Active Substance: ADALIMUMAB
     Route: 058
     Dates: start: 201310, end: 201312
  20. AZATHIOPRINE. [Suspect]
     Active Substance: AZATHIOPRINE
     Indication: COLITIS ULCERATIVE
     Route: 048
     Dates: start: 20150410, end: 20160709
  21. SALOFALK SUPP. [Concomitant]
     Indication: COLITIS ULCERATIVE
     Route: 054
     Dates: start: 20150330, end: 201505

REACTIONS (1)
  - Contusion [Recovered/Resolved]

NARRATIVE: CASE EVENT DATE: 20190311
